FAERS Safety Report 18769399 (Version 9)
Quarter: 2022Q4

REPORT INFORMATION
  Report Type: Spontaneous
  Country: CZ (occurrence: CZ)
  Receive Date: 20210121
  Receipt Date: 20221129
  Transmission Date: 20230112
  Serious: Yes (Other)
  Sender: FDA-Public Use
  Company Number: NVSC2021CZ012290

PATIENT
  Age: 74 Year
  Sex: Female

DRUGS (4)
  1. DICLOFENAC [Suspect]
     Active Substance: DICLOFENAC
     Indication: Back pain
     Dosage: 75 MG
     Route: 065
     Dates: start: 1988, end: 2013
  2. NIMESULIDE [Suspect]
     Active Substance: NIMESULIDE
     Indication: Back pain
     Dosage: 75 MG, QD LONG-TERM USE OF NSAIDS
     Route: 065
     Dates: start: 1988, end: 2013
  3. IBUPROFEN [Suspect]
     Active Substance: IBUPROFEN
     Indication: Back pain
     Dosage: 400 MG, AS NEEDED
     Route: 065
     Dates: start: 1988
  4. CELECOXIB [Suspect]
     Active Substance: CELECOXIB
     Indication: Back pain
     Dosage: UNK
     Route: 065
     Dates: end: 2017

REACTIONS (4)
  - Gastrointestinal haemorrhage [Unknown]
  - Contraindicated product administered [Unknown]
  - Intestinal haemorrhage [Unknown]
  - Functional gastrointestinal disorder [Unknown]

NARRATIVE: CASE EVENT DATE: 20130101
